FAERS Safety Report 19772828 (Version 1)
Quarter: 2021Q3

REPORT INFORMATION
  Report Type: Report from Study
  Country: AR (occurrence: AR)
  Receive Date: 20210831
  Receipt Date: 20210831
  Transmission Date: 20211014
  Serious: Yes (Death, Other)
  Sender: FDA-Public Use
  Company Number: AR-GILEAD-2021-0542075

PATIENT
  Age: 45 Year
  Sex: Male

DRUGS (27)
  1. AMOXICILLIN;SULBACTAM [Concomitant]
     Active Substance: AMOXICILLIN\SULBACTAM
  2. CLARITHROMYCIN. [Concomitant]
     Active Substance: CLARITHROMYCIN
  3. FUROSEMIDE. [Concomitant]
     Active Substance: FUROSEMIDE
  4. LACTULOSE. [Concomitant]
     Active Substance: LACTULOSE
  5. NOREPINEPHRINE BITARTRATE. [Concomitant]
     Active Substance: NOREPINEPHRINE BITARTRATE
  6. PROPOFOL. [Concomitant]
     Active Substance: PROPOFOL
  7. VANCOMYCIN [Concomitant]
     Active Substance: VANCOMYCIN
  8. ATRACURIUM [Concomitant]
     Active Substance: ATRACURIUM
  9. DIAZEPAM. [Concomitant]
     Active Substance: DIAZEPAM
  10. PLACEBO [Suspect]
     Active Substance: UNSPECIFIED INGREDIENT
     Indication: COVID-19
     Dosage: UNK, ONCE
     Route: 042
     Dates: start: 20210625, end: 20210625
  11. ACETYLCYSTEINE. [Concomitant]
     Active Substance: ACETYLCYSTEINE
  12. HEPARIN [Concomitant]
     Active Substance: HEPARIN SODIUM
  13. LORAZEPAM. [Concomitant]
     Active Substance: LORAZEPAM
  14. MEROPENEM. [Concomitant]
     Active Substance: MEROPENEM
  15. RANITIDINE. [Concomitant]
     Active Substance: RANITIDINE
  16. BLINDED ABATACEPT [Suspect]
     Active Substance: ABATACEPT
     Indication: COVID-19
     Dosage: UNK, ONCE
     Route: 042
     Dates: start: 20210625, end: 20210625
  17. OXYGEN. [Concomitant]
     Active Substance: OXYGEN
  18. PANCURONIUM [Concomitant]
     Active Substance: PANCURONIUM
  19. PARACETAMOL [Concomitant]
     Active Substance: ACETAMINOPHEN
  20. REMDESIVIR. [Suspect]
     Active Substance: REMDESIVIR
     Indication: COVID-19
     Dosage: UNK UNK, QD
     Route: 042
     Dates: start: 20210625
  21. DEXMEDETOMIDINE. [Concomitant]
     Active Substance: DEXMEDETOMIDINE
  22. SODIUM CHLORIDE. [Concomitant]
     Active Substance: SODIUM CHLORIDE
  23. AMIKACIN. [Concomitant]
     Active Substance: AMIKACIN
  24. COLISTIN [Concomitant]
     Active Substance: COLISTIN
  25. DEXAMETHASONE. [Concomitant]
     Active Substance: DEXAMETHASONE
  26. IMIPENEM [Concomitant]
     Active Substance: IMIPENEM
  27. REMIFENTANIL [Concomitant]
     Active Substance: REMIFENTANIL

REACTIONS (1)
  - Septic shock [Fatal]

NARRATIVE: CASE EVENT DATE: 20210714
